FAERS Safety Report 9489985 (Version 2)
Quarter: 2013Q3

REPORT INFORMATION
  Report Type: Spontaneous
  Country: JP (occurrence: JP)
  Receive Date: 20130829
  Receipt Date: 20130903
  Transmission Date: 20140515
  Serious: Yes (Hospitalization)
  Sender: FDA-Public Use
  Company Number: JP-ABBOTT-13P-087-1138867-00

PATIENT
  Age: 50 Year
  Sex: Male

DRUGS (3)
  1. HUMIRA [Suspect]
     Indication: CROHN^S DISEASE
     Route: 058
     Dates: start: 201306
  2. HUMIRA [Suspect]
  3. HUMIRA [Suspect]

REACTIONS (5)
  - Asthenia [Unknown]
  - Pyrexia [Unknown]
  - Ascites [Unknown]
  - Crohn^s disease [Unknown]
  - Crohn^s disease [Unknown]
